FAERS Safety Report 7855109-7 (Version None)
Quarter: 2011Q4

REPORT INFORMATION
  Report Type: 
  Country: None (occurrence: None)
  Receive Date: 20111026
  Receipt Date: 20111017
  Transmission Date: 20120403
  Serious: Yes (Other)
  Sender: FDA-Public Use
  Company Number: PHEH2009US06627

PATIENT
  Sex: Female

DRUGS (12)
  1. CALCIUM CARBONATE [Concomitant]
     Dosage: UNK UKN, UNK
  2. PRAVASTATIN [Concomitant]
     Dosage: 40 MG, UNK
  3. MECLIZINE [Concomitant]
     Dosage: 25 MG, UNK
  4. POTASSIUM [Concomitant]
     Dosage: 20 MG, UNK
  5. RECLAST [Suspect]
     Indication: OSTEOPOROSIS
     Route: 042
     Dates: start: 20090615
  6. CARDIZEM [Concomitant]
     Dosage: 360 MG, UNK
  7. RAMIPRIL [Concomitant]
     Dosage: 10 MG, UNK
  8. TORSEMIDE [Concomitant]
     Dosage: 10 MG, UNK
  9. CARVEDILOL [Concomitant]
     Dosage: 6.25 MG, UNK
  10. RECLAST [Suspect]
     Route: 042
     Dates: start: 20110930
  11. VITAMIN D [Concomitant]
     Dosage: UNK UKN, UNK
  12. COUMADIN [Concomitant]
     Dosage: UNK UKN, UNK

REACTIONS (14)
  - MUSCULAR WEAKNESS [None]
  - HEADACHE [None]
  - PAIN [None]
  - INSOMNIA [None]
  - PAIN IN EXTREMITY [None]
  - ABDOMINAL DISCOMFORT [None]
  - ASTHENIA [None]
  - INFLUENZA [None]
  - FALL [None]
  - NAUSEA [None]
  - BACK PAIN [None]
  - FEELING ABNORMAL [None]
  - DIZZINESS [None]
  - BONE PAIN [None]
